FAERS Safety Report 10390128 (Version 4)
Quarter: 2016Q1

REPORT INFORMATION
  Report Type: Report from Study
  Country: NZ (occurrence: NZ)
  Receive Date: 20140818
  Receipt Date: 20160324
  Transmission Date: 20160525
  Serious: Yes (Hospitalization)
  Sender: FDA-Public Use
  Company Number: NZ-BAYER-2014-103089

PATIENT
  Age: 47 Year
  Sex: Female
  Weight: 51 kg

DRUGS (22)
  1. CIPROFLOXACIN. [Suspect]
     Active Substance: CIPROFLOXACIN
     Indication: BRONCHIECTASIS
     Dosage: CYCLE2, 32.5 MG, BID
     Route: 055
     Dates: start: 20131214, end: 20131223
  2. ERYTHROMYCIN. [Concomitant]
     Active Substance: ERYTHROMYCIN
     Indication: BRONCHIECTASIS
     Dosage: DAILY DOSE 1600 MG
     Route: 048
     Dates: start: 20130211, end: 20130223
  3. CEFACLOR. [Concomitant]
     Active Substance: CEFACLOR
     Indication: BRONCHIECTASIS
     Dosage: DAILY DOSE 750 MG
     Route: 048
     Dates: start: 20130429, end: 20130520
  4. IBUPROFEN. [Concomitant]
     Active Substance: IBUPROFEN
     Dosage: 1200 MG, PRN
     Route: 048
     Dates: start: 20140404
  5. CIPROFLOXACIN. [Suspect]
     Active Substance: CIPROFLOXACIN
     Indication: BRONCHIECTASIS
     Dosage: CYCLE9, 32.5 MG, BID
     Route: 055
     Dates: start: 20140627, end: 20140708
  6. TRISUL [Concomitant]
     Indication: BRONCHIECTASIS
     Dosage: DAILY DOSE 1600 MG
     Route: 048
     Dates: start: 20130213, end: 20130223
  7. RIZATRIPTAN. [Concomitant]
     Active Substance: RIZATRIPTAN
     Dosage: 30 MG, PRN
     Route: 048
     Dates: start: 20140404
  8. CIPROFLOXACIN. [Suspect]
     Active Substance: CIPROFLOXACIN
     Indication: BRONCHIECTASIS
     Dosage: CYCLE7, 32.5 MG, BID
     Route: 055
     Dates: start: 20140503, end: 20140516
  9. CIPROFLOXACIN. [Suspect]
     Active Substance: CIPROFLOXACIN
     Indication: BRONCHIECTASIS
     Dosage: CYCLE8, 32.5 MG, BID
     Route: 055
     Dates: start: 20140530, end: 20140612
  10. FLUTICASONE PROPIONATE. [Concomitant]
     Active Substance: FLUTICASONE PROPIONATE
     Indication: BRONCHIECTASIS
     Dosage: DAILY DOSE 250 ?G
     Route: 055
     Dates: start: 200409
  11. PANADOL [Concomitant]
     Active Substance: ACETAMINOPHEN
     Indication: SPINAL COMPRESSION FRACTURE
     Dosage: 1 G, PRN
     Route: 048
     Dates: start: 20080303
  12. TRISUL [Concomitant]
     Indication: BRONCHIECTASIS
     Dosage: DAILY DOSE 1600 MG
     Route: 048
     Dates: start: 20130925, end: 20131006
  13. DOXYCYCLINE. [Concomitant]
     Active Substance: DOXYCYCLINE
     Indication: BRONCHIECTASIS
     Dosage: DAILY DOSE 100 MG
     Route: 048
     Dates: start: 20130531, end: 20130621
  14. CEFACLOR. [Concomitant]
     Active Substance: CEFACLOR
     Indication: BRONCHIECTASIS
     Dosage: DAILY DOSE 750 MG
     Route: 048
     Dates: start: 20130708, end: 20130729
  15. CIPROFLOXACIN. [Suspect]
     Active Substance: CIPROFLOXACIN
     Indication: BRONCHIECTASIS
     Dosage: CYCLE5, 32.5 MG, BID
     Route: 055
     Dates: start: 20140307, end: 20140320
  16. CIPROFLOXACIN. [Suspect]
     Active Substance: CIPROFLOXACIN
     Indication: BRONCHIECTASIS
     Dosage: CYCLE1, 32.5 MG, BID
     Route: 055
     Dates: start: 20131115, end: 20131127
  17. SALBUTAMOL [Concomitant]
     Active Substance: ALBUTEROL
     Indication: OBSTRUCTIVE AIRWAYS DISORDER
     Dosage: 100 ?G, PRN
     Route: 055
     Dates: start: 20021101
  18. AUGMENTIN [Concomitant]
     Active Substance: AMOXICILLIN\CLAVULANATE POTASSIUM
     Indication: BRONCHIECTASIS
     Dosage: DAILY DOSE 1500 MG
     Route: 048
     Dates: start: 20130118, end: 20130201
  19. CIPROFLOXACIN. [Suspect]
     Active Substance: CIPROFLOXACIN
     Indication: BRONCHIECTASIS
     Dosage: CYCLE3, 32.5 MG, BID
     Route: 055
     Dates: start: 20140111, end: 20140123
  20. CIPROFLOXACIN. [Suspect]
     Active Substance: CIPROFLOXACIN
     Indication: BRONCHIECTASIS
     Dosage: CYCLE4, 32.5 MG, BID
     Route: 055
     Dates: start: 20140207, end: 20140220
  21. CIPROFLOXACIN. [Suspect]
     Active Substance: CIPROFLOXACIN
     Indication: BRONCHIECTASIS
     Dosage: CYCLE6, 32.5 MG, BID
     Route: 055
     Dates: start: 20140405, end: 20140418
  22. TRISUL [Concomitant]
     Indication: BRONCHIECTASIS
     Dosage: DAILY DOSE 1600 MG
     Route: 048
     Dates: start: 20130429, end: 20130509

REACTIONS (1)
  - Retinal vasculitis [Not Recovered/Not Resolved]

NARRATIVE: CASE EVENT DATE: 201403
